FAERS Safety Report 5048766-4 (Version None)
Quarter: 2006Q3

REPORT INFORMATION
  Report Type: 
  Country: None (occurrence: None)
  Receive Date: 20060705
  Receipt Date: 20060626
  Transmission Date: 20061208
  Serious: Yes (Hospitalization, Other)
  Sender: FDA-Public Use
  Company Number: 2006080885

PATIENT
  Age: 80 Year
  Sex: Male

DRUGS (1)
  1. DOXAZOSIN (DOXAZOSIN) [Suspect]
     Indication: BENIGN PROSTATIC HYPERPLASIA

REACTIONS (3)
  - BRONCHITIS [None]
  - OESOPHAGEAL OEDEMA [None]
  - PULMONARY FIBROSIS [None]
